FAERS Safety Report 8993274 (Version 1)
Quarter: 2013Q1

REPORT INFORMATION
  Report Type: Other
  Country: GB (occurrence: GB)
  Receive Date: 20130102
  Receipt Date: 20130102
  Transmission Date: 20140127
  Serious: Yes (Other)
  Sender: FDA-Public Use
  Company Number: GB-WATSON-2012-22938

PATIENT
  Age: 61 Year
  Sex: 0

DRUGS (17)
  1. IBUPROFEN [Suspect]
     Indication: PAIN
     Dosage: 400 MG, TID
     Route: 048
     Dates: start: 20121120
  2. IBUPROFEN [Suspect]
     Dosage: 400 MG, UNK
     Dates: start: 20121126, end: 20121127
  3. LORAZEPAM [Concomitant]
     Indication: PRODUCT USED FOR UNKNOWN INDICATION
     Dosage: 0.5 MG, BID. FOR REVIEW ON DISCHARGE
     Route: 048
     Dates: start: 20121105
  4. MST CONTINUS [Concomitant]
     Indication: PRODUCT USED FOR UNKNOWN INDICATION
     Dosage: 30 MG, BID
     Route: 048
  5. COLCHICINE [Concomitant]
     Indication: PRODUCT USED FOR UNKNOWN INDICATION
     Dosage: 500 MCG, BIDACTUALLY DON^T KNOW WHEN THE DRUG WAS STARTED EXCEPT THAT IT WAS PRIOR TO ADMISSION.
     Route: 048
  6. CARBOCISTEINE [Concomitant]
     Indication: PRODUCT USED FOR UNKNOWN INDICATION
     Dosage: 750 MG, TID.ACTUALLY DON^T KNOW WHEN THE DRUG WAS STARTED EXCEPT THAT IT WAS PRIOR TO ADMISSION.
     Route: 048
  7. OMEPRAZOLE [Concomitant]
     Indication: PRODUCT USED FOR UNKNOWN INDICATION
     Dosage: 20 MG, BID.ACTUALLY DON^T KNOW WHEN THE DRUG WAS STARTED EXCEPT THAT IT WAS PRIOR TO ADMISSION.
     Route: 048
  8. RAMIPRIL [Concomitant]
     Indication: PRODUCT USED FOR UNKNOWN INDICATION
     Dosage: 5 MG, DAILY.ACTUALLY DON^T KNOW WHEN THE DRUG WAS STARTED EXCEPT THAT IT WAS PRIOR TO ADMISSION.
     Route: 048
  9. FEXOFENADINE [Concomitant]
     Indication: PRODUCT USED FOR UNKNOWN INDICATION
     Dosage: 180 MG, DAILY.ACTUALLY DON^T KNOW WHEN THE DRUG WAS STARTED EXCEPT THAT IT WAS PRIOR TO ADMISSION.
     Route: 048
  10. SERETIDE [Concomitant]
     Indication: PRODUCT USED FOR UNKNOWN INDICATION
     Dosage: 2 DF, BID.ACTUALLY DON^T KNOW WHEN THE DRUG WAS STARTED EXCEPT THAT IT WAS PRIOR TO ADMISSION.
     Route: 055
  11. BISOPROLOL [Concomitant]
     Indication: PRODUCT USED FOR UNKNOWN INDICATION
     Dosage: 2.5 MG, BID.ACTUALLY DON^T KNOW WHEN THE DRUG WAS STARTED EXCEPT THAT IT WAS PRIOR TO ADMISSION.
     Route: 048
  12. DOXYCYCLINE [Concomitant]
     Indication: PRODUCT USED FOR UNKNOWN INDICATION
     Dosage: 100 MG, DAILY.ACTUALLY DON^T KNOW WHEN THE DRUG WAS STARTED EXCEPT THAT IT WAS PRIOR TO ADMISSION.
     Route: 048
  13. CLEXANE [Concomitant]
     Indication: PRODUCT USED FOR UNKNOWN INDICATION
     Dosage: 40 MG, DAILY. ASSUME THIS WAS PRESCRIBED FOR INPATIENT STAY ONLY
     Route: 058
     Dates: start: 20121021
  14. TRAMADOL [Concomitant]
     Indication: PRODUCT USED FOR UNKNOWN INDICATION
     Dosage: 100 MG, Q6H.ACTUALLY DON^T KNOW WHEN THE DRUG WAS STARTED EXCEPT THAT IT WAS PRIOR TO ADMISSION.
     Route: 048
  15. PARACETAMOL [Concomitant]
     Indication: PRODUCT USED FOR UNKNOWN INDICATION
     Dosage: 1 G, Q6H.ACTUALLY DON^T KNOW WHEN THE DRUG WAS STARTED EXCEPT THAT IT WAS PRIOR TO ADMISSION.
     Route: 048
  16. CO-CODAMOL [Concomitant]
     Indication: PRODUCT USED FOR UNKNOWN INDICATION
     Dosage: UNK, UNKNOWN AS NECESSARY. ACTUALLY DON^T KNOW WHEN THE DRUG WAS STARTED EXCEPT THAT IT WAS PRIOR TO
     Route: 048
  17. MORPHINE HYDROCHLORIDE [Concomitant]
     Indication: PRODUCT USED FOR UNKNOWN INDICATION
     Dosage: UNK, UNKNOWN. AS NECESSARY.ACTUALLY DON^T KNOW WHEN THE DRUG WAS STARTED EXCEPT THAT IT WAS PRIOR TO
     Route: 048

REACTIONS (3)
  - Skin exfoliation [Recovering/Resolving]
  - Erythema [Recovering/Resolving]
  - Dermatitis [Recovering/Resolving]
